FAERS Safety Report 10662651 (Version 1)
Quarter: 2014Q4

REPORT INFORMATION
  Report Type: Spontaneous
  Country: US (occurrence: US)
  Receive Date: 20141218
  Receipt Date: 20141218
  Transmission Date: 20150529
  Serious: Yes (Other)
  Sender: FDA-Public Use
  Company Number: US-GILEAD-2014-0126596

PATIENT
  Age: 28 Year
  Sex: Female

DRUGS (1)
  1. LETAIRIS [Suspect]
     Active Substance: AMBRISENTAN
     Indication: PRODUCT USED FOR UNKNOWN INDICATION
     Dosage: 10 MG, UNK
     Route: 065
     Dates: start: 20120214

REACTIONS (6)
  - Fatigue [Unknown]
  - Pulmonary hypertension [Unknown]
  - Malaise [Unknown]
  - Therapy cessation [Unknown]
  - Tachycardia [Unknown]
  - Dyspnoea [Unknown]
